FAERS Safety Report 11264635 (Version 1)
Quarter: 2015Q3

REPORT INFORMATION
  Report Type: Spontaneous
  Country: US (occurrence: US)
  Receive Date: 20150713
  Receipt Date: 20150713
  Transmission Date: 20151125
  Serious: Yes (Death)
  Sender: FDA-Public Use
  Company Number: US-PFIZER INC-2015228681

PATIENT
  Sex: Female

DRUGS (2)
  1. FASLODEX [Suspect]
     Active Substance: FULVESTRANT
     Indication: BREAST CANCER METASTATIC
     Dosage: UNK, CYCLIC
  2. IBRANCE [Suspect]
     Active Substance: PALBOCICLIB
     Indication: BREAST CANCER METASTATIC
     Dosage: UNK, CYCLIC

REACTIONS (3)
  - Product use issue [Unknown]
  - Disease progression [Fatal]
  - Breast cancer metastatic [Fatal]
